FAERS Safety Report 7552325-9 (Version None)
Quarter: 2011Q2

REPORT INFORMATION
  Report Type: 
  Country: None (occurrence: None)
  Receive Date: 20110616
  Receipt Date: 20050620
  Transmission Date: 20111010
  Serious: Yes (Death)
  Sender: FDA-Public Use
  Company Number: PHHO2001BR10637

PATIENT
  Sex: Female

DRUGS (5)
  1. FORADIL [Suspect]
     Dosage: 12 UG, BID
     Route: 048
  2. MIFLASONA [Concomitant]
  3. BRICANYL [Concomitant]
     Dosage: 2.5 MG, UNK
     Dates: start: 20000809
  4. PREDNISONE [Concomitant]
     Dates: start: 20000809
  5. ACCOLATE [Concomitant]
     Dates: start: 20001019

REACTIONS (1)
  - DEATH [None]
